FAERS Safety Report 13066095 (Version 2)
Quarter: 2017Q1

REPORT INFORMATION
  Report Type: Report from Study
  Country: PA (occurrence: PA)
  Receive Date: 20161227
  Receipt Date: 20170112
  Transmission Date: 20170428
  Serious: Yes (Other)
  Sender: FDA-Public Use
  Company Number: PHHY2016PA004292

PATIENT
  Age: 89 Year
  Sex: Female

DRUGS (3)
  1. QUETIAPINE. [Concomitant]
     Active Substance: QUETIAPINE
     Indication: PRODUCT USED FOR UNKNOWN INDICATION
     Dosage: 25 MG, (? TABLET IN THE MORNING, ? TABLET IN THE AFTERNOON AND 1 TABLET BEFORE BEDTIME)
     Route: 065
  2. ATENOLAN [Concomitant]
     Indication: PRODUCT USED FOR UNKNOWN INDICATION
     Dosage: 1 DF, QD
     Route: 065
  3. EXELON PATCH [Suspect]
     Active Substance: RIVASTIGMINE
     Indication: DEMENTIA ALZHEIMER^S TYPE
     Dosage: UNK
     Route: 062
     Dates: start: 20130826

REACTIONS (18)
  - Insomnia [Unknown]
  - Depression [Unknown]
  - Headache [Unknown]
  - Anxiety [Unknown]
  - Transient ischaemic attack [Unknown]
  - Disorientation [Unknown]
  - Malaise [Unknown]
  - Asthenia [Unknown]
  - Depressed mood [Unknown]
  - Memory impairment [Unknown]
  - Thirst [Unknown]
  - Restlessness [Unknown]
  - Psychiatric symptom [Unknown]
  - Disturbance in attention [Unknown]
  - Incoherent [Unknown]
  - Neck pain [Unknown]
  - Feeling abnormal [Unknown]
  - Hypertension [Unknown]

NARRATIVE: CASE EVENT DATE: 201610
